FAERS Safety Report 8320946-1 (Version None)
Quarter: 2012Q2

REPORT INFORMATION
  Report Type: 
  Country: None (occurrence: None)
  Receive Date: 20120426
  Receipt Date: 20120412
  Transmission Date: 20120825
  Serious: Yes (Disabling, Other)
  Sender: FDA-Public Use
  Company Number: 1261141

PATIENT
  Sex: Male

DRUGS (9)
  1. TEMOZOLOMIDE [Suspect]
     Dosage: NOT REPORTED
  2. (THERAPEUTIC RADIOPHARMACEUTICALS) [Suspect]
     Dosage: 35 GY, UNKNOWN, OTHER
  3. VINCRISTINE SULFATE [Suspect]
     Dosage: NOT REPORTED
  4. ETOPOSIDE [Suspect]
     Dosage: NOT REPORTED
  5. CYCLOPHOSPHAMIDE [Suspect]
     Dosage: NOT REPORTED
  6. CARBOPLATIN [Suspect]
     Dosage: 700 MG/M 2 MILLIGRAM(S)/SQ. METER
  7. CISPLATIN [Suspect]
     Dosage: 80 MG/M 2 MILLIGRAM(S)/SQ. METER
  8. DEPOCYT [Suspect]
     Dosage: 50 MG MILLIGRAM(S), INTRATHECAL
     Route: 037
  9. (LOMUSTINE) [Suspect]
     Dosage: NOT REPORTED

REACTIONS (7)
  - ATAXIA [None]
  - VISUAL IMPAIRMENT [None]
  - DYSARTHRIA [None]
  - DEAFNESS [None]
  - HYPOTHYROIDISM [None]
  - COGNITIVE DISORDER [None]
  - COORDINATION ABNORMAL [None]
